FAERS Safety Report 23144551 (Version 1)
Quarter: 2023Q4

REPORT INFORMATION
  Report Type: Spontaneous
  Country: DK (occurrence: DK)
  Receive Date: 20231103
  Receipt Date: 20231103
  Transmission Date: 20240110
  Serious: Yes (Other)
  Sender: FDA-Public Use
  Company Number: DK-SUN PHARMACEUTICAL INDUSTRIES LTD-2023R1-415845

PATIENT
  Age: 33 Year
  Sex: Male

DRUGS (1)
  1. ISOTRETINOIN [Suspect]
     Active Substance: ISOTRETINOIN
     Indication: Hidradenitis
     Dosage: UNK UNK, DAILY
     Route: 065

REACTIONS (4)
  - Condition aggravated [Unknown]
  - Lip dry [Unknown]
  - Blepharitis [Unknown]
  - Cheilitis [Unknown]
